FAERS Safety Report 11666268 (Version 3)
Quarter: 2015Q4

REPORT INFORMATION
  Report Type: Report from Study
  Country: FR (occurrence: FR)
  Receive Date: 20151027
  Receipt Date: 20151118
  Transmission Date: 20160304
  Serious: Yes (Hospitalization)
  Sender: FDA-Public Use
  Company Number: FR-ROCHE-1645415

PATIENT
  Age: 42 Year
  Sex: Female
  Weight: 55 kg

DRUGS (8)
  1. VEMURAFENIB [Suspect]
     Active Substance: VEMURAFENIB
     Indication: MALIGNANT MELANOMA
     Dosage: 4 TABS DAILY IN THE MORNING AND 3 TABS DAILY AT THE NIGHT
     Route: 048
     Dates: start: 20150930, end: 20151009
  2. LEVOTHYROX [Concomitant]
     Active Substance: LEVOTHYROXINE
     Indication: HYPOTHYROIDISM
     Route: 048
     Dates: start: 201406
  3. HYDROCORTISONE. [Concomitant]
     Active Substance: HYDROCORTISONE
     Dosage: INDICAITON: SIDE EFFECT OF IPILIMUMAB
     Route: 048
     Dates: start: 201411
  4. HYDROCORTISONE. [Concomitant]
     Active Substance: HYDROCORTISONE
     Dosage: INDICAITON: CORTICORTROPIC INSUFFICIENCY
     Route: 048
     Dates: start: 201406
  5. COBIMETINIB [Suspect]
     Active Substance: COBIMETINIB
     Indication: MALIGNANT MELANOMA
     Dosage: 3 TABS DAILY ONCE DAILY
     Route: 048
     Dates: start: 20150930, end: 20151009
  6. LEVOTHYROX [Concomitant]
     Active Substance: LEVOTHYROXINE
     Dosage: INDICATION: CENTRAL HYPOTHYROIDISM UNDER IPILIMUMAB
     Route: 048
     Dates: start: 201411
  7. MONEVA [Concomitant]
     Active Substance: ETHINYL ESTRADIOL\GESTODENE
     Indication: CONTRACEPTION
     Route: 048
  8. LOPERAMIDE [Concomitant]
     Active Substance: LOPERAMIDE
     Indication: DIARRHOEA
     Route: 048
     Dates: start: 20151003, end: 20151004

REACTIONS (2)
  - Face oedema [Recovering/Resolving]
  - Toxic skin eruption [Recovering/Resolving]

NARRATIVE: CASE EVENT DATE: 20151008
